FAERS Safety Report 7207771-X (Version None)
Quarter: 2011Q1

REPORT INFORMATION
  Report Type: 
  Country: None (occurrence: None)
  Receive Date: 20110103
  Receipt Date: 20101231
  Transmission Date: 20110831
  Serious: Yes (Other)
  Sender: FDA-Public Use
  Company Number: US-BRISTOL-MYERS SQUIBB COMPANY-15467681

PATIENT
  Age: 37 Year
  Sex: Female

DRUGS (3)
  1. ABILIFY [Suspect]
     Indication: BIPOLAR DISORDER
     Dosage: 5MG TAB 3 PER 1 DAY ON 30DEC10
     Dates: start: 20101229
  2. TRILEPTAL [Concomitant]
     Dates: end: 20101225
  3. LEXAPRO [Concomitant]
     Dates: end: 20101225

REACTIONS (1)
  - PSYCHOTIC DISORDER [None]
